FAERS Safety Report 23078020 (Version 5)
Quarter: 2023Q4

REPORT INFORMATION
  Report Type: Report from Study
  Country: US (occurrence: US)
  Receive Date: 20231018
  Receipt Date: 20231128
  Transmission Date: 20240110
  Serious: Yes (Hospitalization, Other)
  Sender: FDA-Public Use
  Company Number: US-ASTELLAS-2023EU003603

PATIENT
  Age: 86 Year
  Sex: Male

DRUGS (3)
  1. ENZALUTAMIDE [Suspect]
     Active Substance: ENZALUTAMIDE
     Indication: Prostate cancer
     Dosage: 160 MG, ONCE DAILY (40 X 4 MG TABLET DAILY PO)
     Route: 048
     Dates: start: 20230930
  2. ENZALUTAMIDE [Suspect]
     Active Substance: ENZALUTAMIDE
     Indication: Bone cancer
  3. LUPRON [Suspect]
     Active Substance: LEUPROLIDE ACETATE
     Indication: Product used for unknown indication
     Dosage: UNK UNK, UNKNOWN FREQ.
     Route: 065

REACTIONS (9)
  - Pain [Unknown]
  - Dyspnoea [Unknown]
  - Fatigue [Recovering/Resolving]
  - Cardiac failure [Unknown]
  - Back pain [Recovering/Resolving]
  - Diarrhoea [Unknown]
  - Urinary tract infection [Unknown]
  - Blood urine present [Recovered/Resolved]
  - Nocturia [Unknown]

NARRATIVE: CASE EVENT DATE: 20230901
